FAERS Safety Report 5521941-8 (Version None)
Quarter: 2007Q4

REPORT INFORMATION
  Report Type: 
  Country: None (occurrence: None)
  Receive Date: 20071120
  Receipt Date: 20070405
  Transmission Date: 20080405
  Serious: No
  Sender: FDA-Public Use
  Company Number: US-BRISTOL-MYERS SQUIBB COMPANY-13666342

PATIENT
  Age: 89 Year
  Sex: Female
  Weight: 45 kg

DRUGS (4)
  1. AVALIDE [Suspect]
     Indication: HYPERTENSION
  2. DYNACIRC [Concomitant]
  3. BETA BLOCKER [Concomitant]
  4. VITAMINS [Concomitant]

REACTIONS (1)
  - PALPITATIONS [None]
